FAERS Safety Report 13015785 (Version 1)
Quarter: 2016Q4

REPORT INFORMATION
  Report Type: Spontaneous
  Country: GB (occurrence: GB)
  Receive Date: 20161212
  Receipt Date: 20161212
  Transmission Date: 20170207
  Serious: Yes (Other)
  Sender: FDA-Public Use
  Company Number: GB-ACCORD-046206

PATIENT

DRUGS (3)
  1. BRENTUXIMAB VEDOTIN [Suspect]
     Active Substance: BRENTUXIMAB VEDOTIN
     Indication: HODGKIN^S DISEASE
  2. CISPLATIN. [Suspect]
     Active Substance: CISPLATIN
     Indication: HODGKIN^S DISEASE
  3. BENDAMUSTINE/BENDAMUSTINE HYDROCHLORIDE [Suspect]
     Active Substance: BENDAMUSTINE HYDROCHLORIDE
     Indication: HODGKIN^S DISEASE

REACTIONS (2)
  - Off label use [Unknown]
  - Disease recurrence [Unknown]
